FAERS Safety Report 7198474-9 (Version None)
Quarter: 2010Q4

REPORT INFORMATION
  Report Type: 
  Country: None (occurrence: None)
  Receive Date: 20101227
  Receipt Date: 20101216
  Transmission Date: 20110411
  Serious: Yes (Other)
  Sender: FDA-Public Use
  Company Number: US-SANOFI-AVENTIS-2010SA065336

PATIENT
  Age: 18 Year
  Sex: Female

DRUGS (2)
  1. SOLOSTAR [Suspect]
     Indication: TYPE 1 DIABETES MELLITUS
     Dosage: DOSAGE: 30-34 UNITS, 10-14 UNITSSTART DATE: 4-5 YRS
  2. LANTUS [Suspect]
     Indication: TYPE 1 DIABETES MELLITUS
     Dosage: DOSAGE: 30-34 UNITS, 10-14 UNITSSTART DATE: 4-5 YRS
     Route: 058

REACTIONS (3)
  - BLOOD GLUCOSE DECREASED [None]
  - BLOOD GLUCOSE INCREASED [None]
  - DEVICE MALFUNCTION [None]
